FAERS Safety Report 17898641 (Version 1)
Quarter: 2020Q2

REPORT INFORMATION
  Report Type: Report from Study
  Country: ES (occurrence: ES)
  Receive Date: 20200616
  Receipt Date: 20200616
  Transmission Date: 20200714
  Serious: Yes (Hospitalization, Other)
  Sender: FDA-Public Use
  Company Number: ES-ACCORD-185249

PATIENT
  Age: 72 Year
  Sex: Female

DRUGS (6)
  1. VALSARTAN. [Concomitant]
     Active Substance: VALSARTAN
     Indication: HYPERTENSION
     Route: 048
     Dates: start: 201203
  2. ORFIDAL [Concomitant]
     Active Substance: LORAZEPAM
     Dosage: ORFIDAL 1 MG TABLETS, 25 TABLETS
     Route: 048
     Dates: start: 201605, end: 20170124
  3. SIMVASTATIN. [Suspect]
     Active Substance: SIMVASTATIN
     Indication: DYSLIPIDAEMIA
     Route: 048
     Dates: start: 2011
  4. ALDOCUMAR [Interacting]
     Active Substance: WARFARIN SODIUM
     Indication: PRODUCT USED FOR UNKNOWN INDICATION
     Dosage: 1 MG TABLETS, 40 TABLETS
     Route: 048
     Dates: start: 201504, end: 20170124
  5. PRAXILENE [Concomitant]
     Active Substance: NAFRONYL
     Dosage: 100 MG, CAPSULES, 50 CAPSULES
     Route: 048
     Dates: start: 20150917, end: 20170124
  6. BISOPROLOL [Concomitant]
     Active Substance: BISOPROLOL
     Route: 048
     Dates: start: 201609

REACTIONS (2)
  - Epistaxis [Recovered/Resolved]
  - Drug interaction [Unknown]

NARRATIVE: CASE EVENT DATE: 20170121
